FAERS Safety Report 5594016-X (Version None)
Quarter: 2008Q1

REPORT INFORMATION
  Report Type: 
  Country: None (occurrence: None)
  Receive Date: 20080116
  Receipt Date: 20080107
  Transmission Date: 20080703
  Serious: Yes (Disabling, Other)
  Sender: FDA-Public Use
  Company Number: IE-PFIZER INC-2008002264

PATIENT
  Age: 59 Year
  Sex: Male

DRUGS (4)
  1. CHANTIX [Suspect]
     Indication: SMOKING CESSATION THERAPY
     Route: 048
  2. XENICAL [Concomitant]
  3. PANTOPRAZOLE SODIUM [Concomitant]
  4. NEXIUM [Concomitant]

REACTIONS (7)
  - BALANCE DISORDER [None]
  - DRUG LEVEL CHANGED [None]
  - DYSKINESIA [None]
  - FALL [None]
  - GAIT DISTURBANCE [None]
  - PAIN [None]
  - PARKINSONISM [None]
